FAERS Safety Report 16657166 (Version 1)
Quarter: 2019Q3

REPORT INFORMATION
  Report Type: Spontaneous
  Country: US (occurrence: US)
  Receive Date: 20190801
  Receipt Date: 20190801
  Transmission Date: 20191004
  Serious: No
  Sender: FDA-Public Use
  Company Number: US-PFIZER INC-2019327510

PATIENT
  Age: 52 Year
  Sex: Female
  Weight: 65 kg

DRUGS (4)
  1. FREMANEZUMAB [Suspect]
     Active Substance: FREMANEZUMAB
     Indication: MIGRAINE
     Dosage: 225 MG, UNK (1 IN 1 M)
     Dates: start: 201902
  2. MAXALT [Concomitant]
     Active Substance: RIZATRIPTAN BENZOATE
     Indication: SLEEP DISORDER
  3. MAXALT [Concomitant]
     Active Substance: RIZATRIPTAN BENZOATE
     Indication: HYPERSENSITIVITY
     Dosage: UNK
  4. EFFEXOR [Suspect]
     Active Substance: VENLAFAXINE HYDROCHLORIDE
     Dosage: UNK

REACTIONS (4)
  - Malaise [Recovered/Resolved]
  - Feeling abnormal [Unknown]
  - Nausea [Recovered/Resolved]
  - Fatigue [Recovered/Resolved]

NARRATIVE: CASE EVENT DATE: 2019
